FAERS Safety Report 8482077-X (Version None)
Quarter: 2012Q2

REPORT INFORMATION
  Report Type: 
  Country: None (occurrence: None)
  Receive Date: 20120402
  Receipt Date: 20110617
  Transmission Date: 20120825
  Serious: Yes (Life-Threatening, Hospitalization, Other)
  Sender: FDA-Public Use
  Company Number: A-US2011-50492

PATIENT
  Age: 51 Year
  Sex: Female
  Weight: 99.5 kg

DRUGS (1)
  1. TRACLEER [Suspect]
     Indication: PULMONARY ARTERIAL HYPERTENSION
     Dosage: 62.5 MG, BID, ORAL
     Route: 048
     Dates: start: 20090801, end: 20110511

REACTIONS (3)
  - RESPIRATORY ARREST [None]
  - RESPIRATORY FAILURE [None]
  - TRACHEOSTOMY [None]
